FAERS Safety Report 8626789 (Version 2)
Quarter: 2012Q4

REPORT INFORMATION
  Report Type: 
  Country: US (occurrence: US)
  Receive Date: 20120620
  Receipt Date: 20121019
  Transmission Date: 20130627
  Serious: Yes (Other)
  Sender: FDA-Public Use
  Company Number: US-US-EMD SERONO, INC.-7140198

PATIENT
  Age: 50 None
  Sex: Male

DRUGS (2)
  1. REBIF [Suspect]
     Indication: MULTIPLE SCLEROSIS
     Route: 058
     Dates: start: 20110912, end: 201205
  2. REBIF [Suspect]
     Route: 058
     Dates: start: 201206

REACTIONS (2)
  - Clavicle fracture [Recovered/Resolved]
  - Road traffic accident [Recovered/Resolved]
